FAERS Safety Report 8199123-3 (Version None)
Quarter: 2012Q1

REPORT INFORMATION
  Report Type: 
  Country: None (occurrence: None)
  Receive Date: 20120306
  Receipt Date: 20120222
  Transmission Date: 20120608
  Serious: Yes (Other)
  Sender: FDA-Public Use
  Company Number: 1202-060

PATIENT
  Age: 86 Year
  Sex: Female

DRUGS (1)
  1. EYLEA [Suspect]
     Indication: AGE-RELATED MACULAR DEGENERATION
     Dosage: 2 MG, 1 IN 1 M, INTRAVITREAL
     Dates: start: 20120105, end: 20120105

REACTIONS (4)
  - VITREOUS FLOATERS [None]
  - ANTERIOR CHAMBER CELL [None]
  - CORNEAL EROSION [None]
  - ANTERIOR CHAMBER INFLAMMATION [None]
